FAERS Safety Report 6446559-4 (Version None)
Quarter: 2009Q4

REPORT INFORMATION
  Report Type: 
  Country: None (occurrence: None)
  Receive Date: 20091119
  Receipt Date: 20091111
  Transmission Date: 20100525
  Serious: Yes (Disabling)
  Sender: FDA-Public Use
  Company Number: JP-ASTRAZENECA-2009SE02476

PATIENT
  Age: 49 Year
  Sex: Male
  Weight: 64 kg

DRUGS (12)
  1. ANAPEINE [Suspect]
     Indication: ANALGESIC THERAPY
     Route: 008
     Dates: start: 20090601, end: 20090605
  2. FENTANYL-100 [Suspect]
     Route: 008
     Dates: start: 20090601, end: 20090605
  3. XYLOCAINE [Concomitant]
     Indication: EPIDURAL TEST DOSE
     Route: 008
     Dates: start: 20090529, end: 20090529
  4. SEISHOKU [Concomitant]
     Route: 008
     Dates: start: 20090529
  5. PROPOFOL [Concomitant]
     Indication: INDUCTION OF ANAESTHESIA
     Route: 042
     Dates: start: 20090601, end: 20090601
  6. SEVOFLURANE [Concomitant]
     Indication: MAINTENANCE OF ANAESTHESIA
     Route: 055
     Dates: start: 20090601, end: 20090601
  7. NORVASC [Concomitant]
     Indication: HYPERTENSION
     Route: 048
     Dates: start: 20090101
  8. CARDENALIN [Concomitant]
     Indication: HYPERTENSION
     Route: 048
     Dates: start: 20090101
  9. CEZ [Concomitant]
     Route: 041
     Dates: start: 20090601
  10. INOVAN [Concomitant]
     Route: 065
     Dates: start: 20090601, end: 20090601
  11. ALPROSTADIL [Concomitant]
     Route: 041
     Dates: start: 20090601, end: 20090605
  12. HANP [Concomitant]
     Route: 041
     Dates: start: 20090601, end: 20090605

REACTIONS (1)
  - CAUDA EQUINA SYNDROME [None]
